FAERS Safety Report 17922637 (Version 1)
Quarter: 2020Q2

REPORT INFORMATION
  Report Type: Spontaneous
  Country: US (occurrence: US)
  Receive Date: 20200622
  Receipt Date: 20200622
  Transmission Date: 20200714
  Serious: Yes (Hospitalization, Other)
  Sender: FDA-Public Use
  Company Number: US-ENDO PHARMACEUTICALS INC-2020-004275

PATIENT
  Age: 7 Month
  Sex: Male

DRUGS (2)
  1. VIGABATRIN. [Suspect]
     Active Substance: VIGABATRIN
     Indication: INFANTILE SPASMS
     Dosage: UNK UNKNOWN, UNKNOWN
     Route: 065
  2. ACTH [Concomitant]
     Active Substance: CORTICOTROPIN
     Indication: INFANTILE SPASMS

REACTIONS (5)
  - Mental status changes [Recovering/Resolving]
  - Magnetic resonance imaging brain abnormal [Unknown]
  - Infantile spasms [Unknown]
  - Intramyelinic oedema [Unknown]
  - Condition aggravated [Unknown]
